FAERS Safety Report 9701305 (Version 1)
Quarter: 2013Q4

REPORT INFORMATION
  Report Type: Spontaneous
  Country: US (occurrence: US)
  Receive Date: 20131121
  Receipt Date: 20131121
  Transmission Date: 20140711
  Serious: No
  Sender: FDA-Public Use
  Company Number: US-GILEAD-2008-0016345

PATIENT
  Age: 56 Year
  Sex: Female
  Weight: 111.13 kg

DRUGS (20)
  1. LETAIRIS [Suspect]
     Indication: PULMONARY HYPERTENSION
     Route: 048
  2. LETAIRIS [Suspect]
     Route: 048
     Dates: start: 20080421
  3. SEROQUEL [Concomitant]
     Route: 048
  4. SEROQUEL [Concomitant]
     Route: 048
  5. PLAQUENIL [Concomitant]
     Route: 048
  6. PLAQUENIL [Concomitant]
     Route: 048
  7. ATENOLOL [Concomitant]
     Route: 048
  8. ATENOLOL [Concomitant]
     Route: 048
  9. CARDIZEM [Concomitant]
     Route: 048
  10. CARDIZEM [Concomitant]
     Route: 048
  11. ISOSORB MONO [Concomitant]
     Route: 048
  12. ISOSORB MONO [Concomitant]
     Route: 048
  13. NEXIUM [Concomitant]
     Route: 048
  14. NEXIUM [Concomitant]
     Route: 048
  15. LASIX [Concomitant]
     Route: 048
  16. LASIX [Concomitant]
     Route: 048
  17. METFORMIN [Concomitant]
     Route: 048
  18. METFORMIN [Concomitant]
     Route: 048
  19. LEVOTHROID [Concomitant]
     Route: 048
  20. LEVOTHROID [Concomitant]
     Route: 048

REACTIONS (2)
  - Nasal congestion [Unknown]
  - Hot flush [Unknown]
